FAERS Safety Report 5131059-4 (Version None)
Quarter: 2006Q3

REPORT INFORMATION
  Report Type: 
  Country: None (occurrence: None)
  Receive Date: 20060829
  Receipt Date: 20060717
  Transmission Date: 20061208
  Serious: No
  Sender: FDA-Public Use
  Company Number: S06-USA-02767-01

PATIENT
  Age: 62 Year
  Sex: Female

DRUGS (6)
  1. CAMPRAL [Suspect]
     Indication: ALCOHOLISM
     Dosage: 666 MG TID PO
     Route: 048
     Dates: start: 20060620
  2. PRILOSEC [Concomitant]
  3. TOPROL-XL [Concomitant]
  4. EFFEXOR XR [Concomitant]
  5. LASIX [Concomitant]
  6. FLUTICASONE PROPIONATE [Concomitant]

REACTIONS (1)
  - DIARRHOEA [None]
